FAERS Safety Report 16105823 (Version 4)
Quarter: 2019Q2

REPORT INFORMATION
  Report Type: Spontaneous
  Country: CO (occurrence: CO)
  Receive Date: 20190322
  Receipt Date: 20190417
  Transmission Date: 20190711
  Serious: Yes (Other)
  Sender: FDA-Public Use
  Company Number: PHHY2019CO061022

PATIENT
  Age: 56 Year
  Sex: Male

DRUGS (1)
  1. CICLOSPORIN [Suspect]
     Active Substance: CYCLOSPORINE
     Indication: MYASTHENIA GRAVIS
     Dosage: UNK
     Route: 065
     Dates: start: 200909

REACTIONS (4)
  - Nephropathy toxic [Unknown]
  - Azotaemia [Unknown]
  - Renal failure [Unknown]
  - Product use in unapproved indication [Unknown]
